FAERS Safety Report 6706001-2 (Version None)
Quarter: 2010Q2

REPORT INFORMATION
  Report Type: 
  Country: None (occurrence: None)
  Receive Date: 20100430
  Receipt Date: 20100430
  Transmission Date: 20101027
  Serious: Yes (Hospitalization)
  Sender: FDA-Public Use
  Company Number: None

PATIENT
  Age: 21 Year
  Sex: Female

DRUGS (1)
  1. TRINESSA 0.25-0.035 WATSON PHARMS [Suspect]
     Dosage: 1 TAB DAILY PO
     Route: 048

REACTIONS (1)
  - SUPERIOR SAGITTAL SINUS THROMBOSIS [None]
